FAERS Safety Report 13859594 (Version 1)
Quarter: 2017Q3

REPORT INFORMATION
  Report Type: Spontaneous
  Country: US (occurrence: US)
  Receive Date: 20170811
  Receipt Date: 20170811
  Transmission Date: 20171127
  Serious: No
  Sender: FDA-Public Use
  Company Number: US-PFIZER INC-2017346502

PATIENT
  Sex: Female

DRUGS (4)
  1. LYRICA [Suspect]
     Active Substance: PREGABALIN
     Dosage: 600 MG, DAILY (150MG THREE TIMES DAILY AND 50MG AT MID-DAY, UP TO THREE CAPSULES)
  2. LYRICA [Suspect]
     Active Substance: PREGABALIN
     Dosage: 350 MG, DAILY (50MG CAPSULES 7 TIMES A DAY)
  3. LYRICA [Suspect]
     Active Substance: PREGABALIN
     Indication: MUSCULOSKELETAL PAIN
     Dosage: 600 MG, DAILY (150MG THREE TIMES DAILY AND 50MG AT MID-DAY, UP TO THREE CAPSULES)
  4. LYRICA [Suspect]
     Active Substance: PREGABALIN
     Dosage: 150 MG, 2X/DAY

REACTIONS (5)
  - Incorrect dosage administered [Unknown]
  - Diplopia [Unknown]
  - Balance disorder [Unknown]
  - Product use in unapproved indication [Unknown]
  - Feeling drunk [Unknown]
